FAERS Safety Report 17729791 (Version 1)
Quarter: 2020Q2

REPORT INFORMATION
  Report Type: Spontaneous
  Country: JP (occurrence: JP)
  Receive Date: 20200430
  Receipt Date: 20200430
  Transmission Date: 20200714
  Serious: Yes (Hospitalization, Other)
  Sender: FDA-Public Use
  Company Number: JP-PFIZER INC-2020107668

PATIENT
  Age: 62 Year
  Sex: Female

DRUGS (3)
  1. SOLU-CORTEF [Suspect]
     Active Substance: HYDROCORTISONE SODIUM SUCCINATE
     Dosage: 500 MG, 1X/DAY
     Route: 042
     Dates: start: 20200309, end: 20200311
  2. SOLU-CORTEF [Suspect]
     Active Substance: HYDROCORTISONE SODIUM SUCCINATE
     Dosage: 300 MG, 1X/DAY
     Route: 042
     Dates: start: 20200312, end: 20200313
  3. SOLU-CORTEF [Suspect]
     Active Substance: HYDROCORTISONE SODIUM SUCCINATE
     Dosage: 100 MG, 1X/DAY
     Route: 042
     Dates: start: 20200314, end: 20200316

REACTIONS (5)
  - Visual impairment [Unknown]
  - Anxiety [Unknown]
  - Vision blurred [Unknown]
  - Sudden hearing loss [Recovered/Resolved]
  - Eye colour change [Recovered/Resolved]

NARRATIVE: CASE EVENT DATE: 202003
